FAERS Safety Report 9976605 (Version 1)
Quarter: 2014Q1

REPORT INFORMATION
  Report Type: Report from Study
  Country: US (occurrence: US)
  Receive Date: 20140306
  Receipt Date: 20140306
  Transmission Date: 20141002
  Serious: No
  Sender: FDA-Public Use
  Company Number: US-ABBVIE-13P-163-1166779-00

PATIENT
  Age: 66 Year
  Sex: Female

DRUGS (18)
  1. HUMIRA [Suspect]
     Indication: CROHN^S DISEASE
     Route: 058
     Dates: start: 20130920
  2. PLAVIX [Concomitant]
     Indication: MYOCARDIAL INFARCTION
  3. PLAVIX [Concomitant]
     Indication: DEVICE OCCLUSION
  4. ASA [Concomitant]
     Indication: MYOCARDIAL INFARCTION
  5. ASA [Concomitant]
     Indication: DEVICE OCCLUSION
  6. LISINOPRIL [Concomitant]
     Indication: MYOCARDIAL INFARCTION
  7. LISINOPRIL [Concomitant]
     Indication: DEVICE OCCLUSION
  8. METOPROLOL [Concomitant]
     Indication: MYOCARDIAL INFARCTION
  9. METOPROLOL [Concomitant]
     Indication: DEVICE OCCLUSION
  10. ATORVASTATIN [Concomitant]
     Indication: BLOOD CHOLESTEROL
  11. LEVOTHYROXINE [Concomitant]
     Indication: THYROID DISORDER
  12. DEXILANT [Concomitant]
     Indication: GASTRIC DISORDER
  13. BIOTIN [Concomitant]
     Indication: NAIL DISORDER
  14. CALCIUM [Concomitant]
     Indication: PRODUCT USED FOR UNKNOWN INDICATION
  15. VIT D [Concomitant]
     Indication: PRODUCT USED FOR UNKNOWN INDICATION
  16. ZOLPIDEM [Concomitant]
     Indication: INSOMNIA
     Dosage: AT BED TIME
  17. FIBER [Concomitant]
     Indication: PRODUCT USED FOR UNKNOWN INDICATION
  18. MIRALAX [Concomitant]
     Indication: PRODUCT USED FOR UNKNOWN INDICATION

REACTIONS (5)
  - Injection site injury [Recovering/Resolving]
  - Injection site bruising [Recovering/Resolving]
  - Injection site pain [Recovered/Resolved]
  - Injection site haemorrhage [Recovering/Resolving]
  - Injection site erythema [Recovering/Resolving]
